FAERS Safety Report 25697867 (Version 2)
Quarter: 2025Q4

REPORT INFORMATION
  Report Type: Spontaneous
  Country: US (occurrence: US)
  Receive Date: 20250819
  Receipt Date: 20251017
  Transmission Date: 20260118
  Serious: No
  Sender: SANOFI AVENTIS
  Company Number: US-SA-2025SA246107

PATIENT
  Age: 52 Year
  Sex: Male

DRUGS (3)
  1. DUPIXENT [Suspect]
     Active Substance: DUPILUMAB
     Indication: Eczema
     Dosage: 300 MG, QOW
     Route: 058
     Dates: start: 2023, end: 2024
  2. DUPIXENT [Suspect]
     Active Substance: DUPILUMAB
     Dosage: UNK, 1X
     Route: 058
     Dates: start: 20250802, end: 20250802
  3. DUPIXENT [Suspect]
     Active Substance: DUPILUMAB
     Dosage: 300 MG, QOW
     Route: 058
     Dates: start: 202508

REACTIONS (7)
  - Rash pruritic [Unknown]
  - Lip dry [Recovering/Resolving]
  - Eyelid irritation [Recovered/Resolved]
  - Vision blurred [Not Recovered/Not Resolved]
  - Ocular hyperaemia [Recovered/Resolved]
  - Pruritus [Recovered/Resolved]
  - Dry skin [Not Recovered/Not Resolved]

NARRATIVE: CASE EVENT DATE: 20250101
